FAERS Safety Report 22321573 (Version 2)
Quarter: 2023Q2

REPORT INFORMATION
  Report Type: Report from Study
  Country: US (occurrence: US)
  Receive Date: 20230515
  Receipt Date: 20230516
  Transmission Date: 20230721
  Serious: No
  Sender: FDA-Public Use
  Company Number: US-002147023-NVSC2023US105045

PATIENT
  Sex: Male

DRUGS (9)
  1. COSENTYX [Suspect]
     Active Substance: SECUKINUMAB
     Indication: Psoriasis
     Route: 058
  2. CLOBETASOL [Suspect]
     Active Substance: CLOBETASOL
     Indication: Psoriasis
     Route: 061
  3. ACETAMINOPHEN\HYDROCODONE BITARTRATE [Suspect]
     Active Substance: ACETAMINOPHEN\HYDROCODONE BITARTRATE
     Indication: Psoriasis
     Dosage: UNK
     Route: 065
  4. PREGABALIN [Suspect]
     Active Substance: PREGABALIN
     Indication: Psoriasis
     Route: 065
  5. SERTRALINE [Suspect]
     Active Substance: SERTRALINE HYDROCHLORIDE
     Indication: Psoriasis
     Route: 065
  6. TIZANIDINE [Suspect]
     Active Substance: TIZANIDINE
     Indication: Psoriasis
     Route: 065
  7. ALCOHOL [Suspect]
     Active Substance: ALCOHOL
     Indication: Psoriasis
     Dosage: UNK
     Route: 065
  8. CALCIPOTRIENE [Suspect]
     Active Substance: CALCIPOTRIENE
     Indication: Psoriasis
     Route: 065
  9. LIDOCAINE [Suspect]
     Active Substance: LIDOCAINE
     Indication: Psoriasis
     Dosage: UNK
     Route: 065

REACTIONS (10)
  - Neoplasm skin [Unknown]
  - Stress [Unknown]
  - Arthralgia [Unknown]
  - Erythema [Unknown]
  - Guttate psoriasis [Unknown]
  - Psoriasis [Unknown]
  - Papule [Unknown]
  - Skin exfoliation [Unknown]
  - Skin plaque [Unknown]
  - Drug ineffective [Unknown]
